FAERS Safety Report 11427317 (Version 1)
Quarter: 2015Q3

REPORT INFORMATION
  Report Type: Spontaneous
  Country: US (occurrence: US)
  Receive Date: 20150827
  Receipt Date: 20150827
  Transmission Date: 20151125
  Serious: No
  Sender: FDA-Public Use
  Company Number: US-SA-2014SA159024

PATIENT
  Age: 45 Year
  Sex: Female
  Weight: 52.3 kg

DRUGS (10)
  1. IBUPROFEN. [Concomitant]
     Active Substance: IBUPROFEN
  2. DEXAMETHASONE. [Concomitant]
     Active Substance: DEXAMETHASONE
  3. EPINEPHRINE. [Concomitant]
     Active Substance: EPINEPHRINE
  4. MUCINEX [Concomitant]
     Active Substance: GUAIFENESIN
  5. HEPARIN [Concomitant]
     Active Substance: HEPARIN SODIUM
  6. WATER. [Concomitant]
     Active Substance: WATER
  7. NORMAL SALINE [Concomitant]
     Active Substance: SODIUM CHLORIDE
  8. FABRAZYME [Suspect]
     Active Substance: AGALSIDASE BETA
     Indication: LIPIDOSIS
     Route: 042
     Dates: start: 20121204
  9. FABRAZYME [Suspect]
     Active Substance: AGALSIDASE BETA
     Indication: LIPIDOSIS
     Route: 042
     Dates: start: 20121204
  10. DIPHENHYDRAMINE. [Concomitant]
     Active Substance: DIPHENHYDRAMINE

REACTIONS (1)
  - Gastrointestinal infection [Unknown]

NARRATIVE: CASE EVENT DATE: 20141107
